FAERS Safety Report 13566774 (Version 1)
Quarter: 2017Q2

REPORT INFORMATION
  Report Type: Report from Study
  Country: US (occurrence: US)
  Receive Date: 20170522
  Receipt Date: 20170522
  Transmission Date: 20170830
  Serious: No
  Sender: FDA-Public Use
  Company Number: US-ALEXION PHARMACEUTICALS INC.-A201705334

PATIENT
  Sex: Male

DRUGS (1)
  1. STRENSIQ [Suspect]
     Active Substance: ASFOTASE ALFA
     Indication: HYPOPHOSPHATASIA
     Route: 058

REACTIONS (4)
  - Decreased appetite [Unknown]
  - Depression [Unknown]
  - Food intolerance [Unknown]
  - Weight decreased [Unknown]

NARRATIVE: CASE EVENT DATE: 201703
